FAERS Safety Report 21337257 (Version 1)
Quarter: 2022Q3

REPORT INFORMATION
  Report Type: Spontaneous
  Country: SG (occurrence: SG)
  Receive Date: 20220915
  Receipt Date: 20220915
  Transmission Date: 20221026
  Serious: Yes (Death, Life-Threatening, Other)
  Sender: FDA-Public Use
  Company Number: SG-AMGEN-SGPSP2022156035

PATIENT

DRUGS (4)
  1. BEVACIZUMAB [Suspect]
     Active Substance: BEVACIZUMAB
     Indication: Colorectal cancer metastatic
     Dosage: 5 MILLIGRAM/KILOGRAM (ON DAY 1), Q2WK
     Route: 065
  2. TIPIRACIL HYDROCHLORIDE\TRIFLURIDINE [Suspect]
     Active Substance: TIPIRACIL HYDROCHLORIDE\TRIFLURIDINE
     Indication: Colorectal cancer metastatic
     Dosage: 35 MILLIGRAM/SQ.METER, ON DAY 1-5 AND 8-12, QMO
     Route: 065
  3. TIPIRACIL HYDROCHLORIDE\TRIFLURIDINE [Suspect]
     Active Substance: TIPIRACIL HYDROCHLORIDE\TRIFLURIDINE
     Dosage: 30 MILLIGRAM/SQ.METER
     Route: 065
  4. REGORAFENIB [Concomitant]
     Active Substance: REGORAFENIB
     Indication: Colorectal cancer metastatic
     Dosage: UNK
     Route: 065

REACTIONS (6)
  - Death [Fatal]
  - Neutropenia [Unknown]
  - Febrile neutropenia [Unknown]
  - Colorectal cancer metastatic [Unknown]
  - Toxicity to various agents [Unknown]
  - Fatigue [Unknown]
